FAERS Safety Report 5062494-0 (Version None)
Quarter: 2006Q3

REPORT INFORMATION
  Report Type: 
  Country: None (occurrence: None)
  Receive Date: 20060721
  Receipt Date: 20060713
  Transmission Date: 20061208
  Serious: Yes (Other)
  Sender: FDA-Public Use
  Company Number: 14399

PATIENT
  Age: 18 Year
  Sex: Female

DRUGS (7)
  1. HALOPERIDOL [Suspect]
     Indication: ACUTE PSYCHOSIS
     Dosage: 2 MG BID IM
     Route: 030
  2. HALOPERIDOL [Suspect]
     Indication: VOMITING
     Dosage: 2 MG BID IM
     Route: 030
  3. MORPHINE [Suspect]
     Indication: CANCER PAIN
  4. MORPHINE [Suspect]
     Indication: CANCER PAIN
     Dosage: 2 MG ONCE IT
  5. NALOXONE [Suspect]
     Indication: OVERDOSE
     Dosage: 0.2 MG ONCE IV
     Route: 042
  6. NALOXONE [Suspect]
     Indication: OVERDOSE
     Dosage: 0.1 MG IV
     Route: 042
  7. LIDOCAINE W/EPINEPHRINE /00056401/ [Concomitant]

REACTIONS (11)
  - DRUG INTERACTION [None]
  - DRUG TOXICITY [None]
  - DYSPNOEA [None]
  - EXTRAPYRAMIDAL DISORDER [None]
  - GAZE PALSY [None]
  - LOSS OF CONSCIOUSNESS [None]
  - MIOSIS [None]
  - OCULOGYRATION [None]
  - OVERDOSE [None]
  - RESTLESSNESS [None]
  - TORTICOLLIS [None]
